FAERS Safety Report 8866420 (Version 2)
Quarter: 2014Q2

REPORT INFORMATION
  Report Type: Spontaneous
  Country: US (occurrence: US)
  Receive Date: 20121025
  Receipt Date: 20140523
  Transmission Date: 20141212
  Serious: Yes (Other)
  Sender: FDA-Public Use
  Company Number: US-ASTRAZENECA-2012SE79625

PATIENT
  Age: 71 Year
  Sex: Female

DRUGS (4)
  1. TOPROL XL [Suspect]
     Dosage: 100 MG UNKNOWN
     Route: 048
  2. TOPROL XL [Suspect]
     Dosage: GENERIC
     Route: 048
  3. METOPROLOL [Suspect]
     Route: 065
  4. CRESTOR [Suspect]
     Route: 048

REACTIONS (6)
  - Cerebrovascular accident [Unknown]
  - Hypoaesthesia [Unknown]
  - Malaise [Unknown]
  - Dizziness [Unknown]
  - Feeling abnormal [Unknown]
  - Agitation [Unknown]
